FAERS Safety Report 7891912-5 (Version None)
Quarter: 2011Q4

REPORT INFORMATION
  Report Type: 
  Country: None (occurrence: None)
  Receive Date: 20111103
  Receipt Date: 20110811
  Transmission Date: 20120403
  Serious: No
  Sender: FDA-Public Use
  Company Number: US-AMGEN-USASP2011040927

PATIENT
  Age: 53 Year
  Sex: Female

DRUGS (1)
  1. ENBREL [Suspect]
     Indication: PSORIATIC ARTHROPATHY
     Dosage: 50 MG, QWK
     Dates: start: 20110621

REACTIONS (10)
  - ARTHRALGIA [None]
  - INJECTION SITE PRURITUS [None]
  - BACK PAIN [None]
  - INJECTION SITE SWELLING [None]
  - RASH PRURITIC [None]
  - INJECTION SITE ERYTHEMA [None]
  - NAUSEA [None]
  - HEADACHE [None]
  - RASH MACULAR [None]
  - RASH ERYTHEMATOUS [None]
